FAERS Safety Report 7791399-7 (Version None)
Quarter: 2011Q4

REPORT INFORMATION
  Report Type: 
  Country: None (occurrence: None)
  Receive Date: 20111003
  Receipt Date: 20110921
  Transmission Date: 20120403
  Serious: Yes (Other)
  Sender: FDA-Public Use
  Company Number: US-JNJFOC-20110906667

PATIENT
  Sex: Female

DRUGS (4)
  1. PREDNISONE [Concomitant]
     Route: 048
  2. ACYCLOVIR [Concomitant]
     Route: 048
  3. DOXYCYCLINE [Concomitant]
     Route: 048
  4. REMICADE [Suspect]
     Indication: COLITIS ULCERATIVE
     Dosage: A TOTAL OF 4 INFUSIONS
     Route: 042
     Dates: start: 20110101, end: 20110801

REACTIONS (1)
  - HERPES ZOSTER OPHTHALMIC [None]
